FAERS Safety Report 4322925-8 (Version None)
Quarter: 2004Q1

REPORT INFORMATION
  Report Type: 
  Country: None (occurrence: None)
  Receive Date: 20040322
  Receipt Date: 20040202
  Transmission Date: 20041129
  Serious: Yes (Other)
  Sender: FDA-Public Use
  Company Number: PHEH2004US00864

PATIENT
  Age: 77 Year
  Sex: Female
  Weight: 46.7 kg

DRUGS (10)
  1. ZOMETA [Suspect]
     Indication: MULTIPLE MYELOMA
     Dosage: 4 MG EVERY 4 WEEKS, INTRAVENOUS
     Route: 042
     Dates: start: 20031014, end: 20031111
  2. SYNTHROID [Concomitant]
  3. CITRACAL [Concomitant]
  4. THALIDOMIDE (THALIDOMIDE) [Concomitant]
  5. SIMVASTATIN [Concomitant]
  6. TOPROL-XL [Concomitant]
  7. ASPIRIN [Concomitant]
  8. PROCRIT (ERYTHROPOIETIN) [Concomitant]
  9. CITRACAL [Concomitant]
  10. ELAVIL [Concomitant]

REACTIONS (4)
  - BLOOD CREATININE INCREASED [None]
  - BLOOD UREA INCREASED [None]
  - OEDEMA PERIPHERAL [None]
  - RENAL DISORDER [None]
